FAERS Safety Report 6500166-3 (Version None)
Quarter: 2009Q4

REPORT INFORMATION
  Report Type: 
  Country: None (occurrence: None)
  Receive Date: 20091214
  Receipt Date: 20091214
  Transmission Date: 20100525
  Serious: No
  Sender: FDA-Public Use
  Company Number: None

PATIENT
  Sex: Female
  Weight: 56.246 kg

DRUGS (2)
  1. TRI LO SPRINTEC [Suspect]
     Indication: CONTRACEPTION
     Dosage: 28 TABS ONCE DAILY PO
     Route: 048
     Dates: start: 20090901
  2. TRI LO SPRINTEC [Suspect]
     Indication: CONTRACEPTION
     Dosage: 28 TABS ONCE DAILY PO
     Route: 048
     Dates: start: 20091001

REACTIONS (4)
  - ASTHENIA [None]
  - CHEST PAIN [None]
  - FUNGAL INFECTION [None]
  - PAIN IN EXTREMITY [None]
